FAERS Safety Report 7981982-8 (Version None)
Quarter: 2011Q4

REPORT INFORMATION
  Report Type: 
  Country: None (occurrence: None)
  Receive Date: 20111215
  Receipt Date: 20111209
  Transmission Date: 20120403
  Serious: Yes (Death)
  Sender: FDA-Public Use
  Company Number: US-CELGENEUS-163-21880-11121386

PATIENT
  Sex: Male

DRUGS (6)
  1. REVLIMID [Suspect]
     Dosage: 15 MILLIGRAM
     Route: 048
     Dates: start: 20110712
  2. FERROUS SULFATE TAB [Concomitant]
     Route: 065
  3. OXYCONTIN [Concomitant]
     Route: 065
  4. CELEXA [Concomitant]
     Route: 065
  5. MUCINEX [Concomitant]
     Route: 065
  6. CALCIUM CARBONATE [Concomitant]
     Route: 065

REACTIONS (1)
  - DEATH [None]
